FAERS Safety Report 6060595-1 (Version None)
Quarter: 2009Q1

REPORT INFORMATION
  Report Type: 
  Country: None (occurrence: None)
  Receive Date: 20090130
  Receipt Date: 20090130
  Transmission Date: 20090719
  Serious: Yes (Other)
  Sender: FDA-Public Use
  Company Number: None

PATIENT
  Sex: Female
  Weight: 51.2565 kg

DRUGS (4)
  1. PRAVASTATIN [Suspect]
     Indication: HYPERLIPIDAEMIA
     Dosage: ONE DAILY ORAL TRIED AGAIN IN SUMMER 2007
     Route: 048
     Dates: start: 20060601
  2. PRAVASTATIN [Suspect]
     Indication: HYPERLIPIDAEMIA
     Dosage: ONE DAILY ORAL TRIED AGAIN IN SUMMER 2007
     Route: 048
     Dates: start: 20070101
  3. NORTRIPTYLINE HCL [Suspect]
     Indication: ANXIETY DISORDER
     Dosage: ONE DAILY ORAL TRIED AGAIN IN SUMMER 2007
     Route: 048
     Dates: start: 20060601
  4. NORTRIPTYLINE HCL [Suspect]
     Indication: ANXIETY DISORDER
     Dosage: ONE DAILY ORAL TRIED AGAIN IN SUMMER 2007
     Route: 048
     Dates: start: 20070101

REACTIONS (3)
  - GLUTEN FREE DIET [None]
  - PRODUCT QUALITY ISSUE [None]
  - RASH GENERALISED [None]
